FAERS Safety Report 5880977-8 (Version None)
Quarter: 2008Q3

REPORT INFORMATION
  Report Type: 
  Country: None (occurrence: None)
  Receive Date: 20080912
  Receipt Date: 20080624
  Transmission Date: 20090109
  Serious: No
  Sender: FDA-Public Use
  Company Number: US-ABBOTT-08P-163-0457613-00

PATIENT
  Sex: Female
  Weight: 90.8 kg

DRUGS (6)
  1. HUMIRA [Suspect]
     Indication: PSORIASIS
     Route: 058
     Dates: start: 20080605, end: 20080605
  2. HUMIRA [Suspect]
     Route: 058
     Dates: start: 20080612, end: 20080612
  3. HUMIRA [Suspect]
     Route: 058
     Dates: start: 20080601
  4. OLANZAPINE [Concomitant]
     Indication: DRUG USE FOR UNKNOWN INDICATION
  5. LITHIUM CARBONATE [Concomitant]
     Indication: DRUG USE FOR UNKNOWN INDICATION
  6. MEDICATIONS FOR BIPOLAR [Concomitant]
     Indication: BIPOLAR DISORDER

REACTIONS (5)
  - COUGH [None]
  - MALAISE [None]
  - NASAL CONGESTION [None]
  - NASOPHARYNGITIS [None]
  - PRURITUS [None]
